FAERS Safety Report 16840656 (Version 1)
Quarter: 2019Q3

REPORT INFORMATION
  Report Type: Report from Study
  Country: CA (occurrence: CA)
  Receive Date: 20190923
  Receipt Date: 20190923
  Transmission Date: 20191005
  Serious: Yes (Other)
  Sender: FDA-Public Use
  Company Number: CA-PFIZER INC-2019403165

PATIENT
  Sex: Male

DRUGS (7)
  1. BETAMETHASONE DIPROPIONATE/CALCIPOTRIOL [Concomitant]
     Dosage: UNK
     Route: 065
  2. CICLOSPORIN [Suspect]
     Active Substance: CYCLOSPORINE
     Dosage: UNK
  3. COSENTYX [Suspect]
     Active Substance: SECUKINUMAB
     Indication: PSORIASIS
     Dosage: 300 MG, WEEKLY
     Route: 058
  4. BETAMETHASONE DIPROPIONATE/CALCIPOTRIOL [Concomitant]
     Dosage: UNK
  5. COSENTYX [Suspect]
     Active Substance: SECUKINUMAB
     Indication: PSORIASIS
     Dosage: 300 MG, MONTHLY
     Route: 058
  6. DOVONEX [Concomitant]
     Active Substance: CALCIPOTRIENE
     Dosage: UNK
  7. METHOTREXATE SODIUM. [Suspect]
     Active Substance: METHOTREXATE SODIUM
     Dosage: UNK

REACTIONS (3)
  - Nasopharyngitis [Unknown]
  - Psoriasis [Unknown]
  - Pneumonia [Unknown]
